FAERS Safety Report 6957770-8 (Version None)
Quarter: 2010Q3

REPORT INFORMATION
  Report Type: 
  Country: None (occurrence: None)
  Receive Date: 20100830
  Receipt Date: 20100830
  Transmission Date: 20110219
  Serious: Yes (Hospitalization)
  Sender: FDA-Public Use
  Company Number: None

PATIENT
  Sex: Male
  Weight: 94.4 kg

DRUGS (1)
  1. ERBITUX [Suspect]
     Dosage: 1918 MG

REACTIONS (6)
  - INFECTION [None]
  - MUCOSAL INFLAMMATION [None]
  - ORAL PAIN [None]
  - PAIN [None]
  - RASH PAPULAR [None]
  - SKIN EXFOLIATION [None]
